FAERS Safety Report 7471639-4 (Version None)
Quarter: 2011Q2

REPORT INFORMATION
  Report Type: 
  Country: None (occurrence: None)
  Receive Date: 20110511
  Receipt Date: 20110505
  Transmission Date: 20111010
  Serious: Yes (Death, Hospitalization, Other)
  Sender: FDA-Public Use
  Company Number: MX-SANOFI-AVENTIS-2011SA028004

PATIENT
  Sex: Female

DRUGS (6)
  1. PAXIL [Concomitant]
     Route: 048
     Dates: end: 20110124
  2. CALCIUM [Concomitant]
     Route: 048
     Dates: end: 20110124
  3. IRON/VITAMINS NOS [Concomitant]
     Indication: PRODUCT USED FOR UNKNOWN INDICATION
     Route: 048
     Dates: end: 20110124
  4. GLYCINE MAX SEED OIL AND FRUCTOSE AND CARTHAMUS TINCTORIUS OIL AND VIT [Concomitant]
     Indication: NUTRITIONAL SUPPORT
     Route: 048
     Dates: end: 20110124
  5. INSULINS AND ANALOGUES,FAST-ACTING [Concomitant]
     Route: 058
     Dates: end: 20110124
  6. LANTUS [Suspect]
     Route: 058
     Dates: start: 20090101, end: 20110124

REACTIONS (7)
  - HYPOGLYCAEMIA [None]
  - NEPHROPATHY [None]
  - APHTHOUS STOMATITIS [None]
  - INFECTION [None]
  - CARDIOMYOPATHY [None]
  - CONDITION AGGRAVATED [None]
  - HYPERGLYCAEMIA [None]
